FAERS Safety Report 16608781 (Version 1)
Quarter: 2019Q3

REPORT INFORMATION
  Report Type: Spontaneous
  Country: FR (occurrence: FR)
  Receive Date: 20190722
  Receipt Date: 20190722
  Transmission Date: 20191004
  Serious: Yes (Hospitalization, Other)
  Sender: FDA-Public Use
  Company Number: FR-PFIZER INC-2019304268

PATIENT
  Age: 41 Year
  Sex: Female
  Weight: 93 kg

DRUGS (3)
  1. AMOXICILLINE [AMOXICILLIN] [Concomitant]
     Active Substance: AMOXICILLIN
     Dosage: 2 G, 1X/DAY
     Route: 048
     Dates: start: 20180507
  2. VENTOLINE [SALBUTAMOL SULFATE] [Concomitant]
     Active Substance: ALBUTEROL SULFATE
     Route: 055
  3. IBUPROFEN. [Suspect]
     Active Substance: IBUPROFEN
     Indication: TOOTH ABSCESS
     Dosage: 400 MG, AS NEEDED
     Route: 048
     Dates: start: 20180507, end: 20180508

REACTIONS (1)
  - Cellulitis [Recovered/Resolved]

NARRATIVE: CASE EVENT DATE: 20180508
